FAERS Safety Report 9279466 (Version 1)
Quarter: 2013Q2

REPORT INFORMATION
  Report Type: Spontaneous
  Country: BR (occurrence: BR)
  Receive Date: 20130508
  Receipt Date: 20130508
  Transmission Date: 20140414
  Serious: Yes (Death, Hospitalization)
  Sender: FDA-Public Use
  Company Number: BR-B.I. PHARMACEUTICALS,INC./RIDGEFIELD-2013-BR-00509BR

PATIENT
  Age: 72 Year
  Sex: Male
  Weight: 42 kg

DRUGS (3)
  1. SPIRIVA RESPIMAT [Suspect]
     Indication: CHRONIC OBSTRUCTIVE PULMONARY DISEASE
     Dosage: 5 MCG
     Route: 055
     Dates: start: 2008
  2. ATROVENT N [Suspect]
     Indication: CHRONIC OBSTRUCTIVE PULMONARY DISEASE
     Dosage: 20 MCG
     Route: 055
     Dates: start: 2008
  3. ACETYLCYSTEINE [Concomitant]
     Indication: COUGH
     Dates: start: 2008, end: 20130222

REACTIONS (1)
  - Chronic obstructive pulmonary disease [Fatal]
